FAERS Safety Report 8044439-4 (Version None)
Quarter: 2012Q1

REPORT INFORMATION
  Report Type: 
  Country: None (occurrence: None)
  Receive Date: 20120113
  Receipt Date: 20120103
  Transmission Date: 20120608
  Serious: Yes (Death)
  Sender: FDA-Public Use
  Company Number: US-SHIONOGI, INC-2012000039

PATIENT
  Age: 41 Year
  Sex: Female

DRUGS (7)
  1. COLESEVELAM HYDROCHLORIDE [Suspect]
     Dosage: UNK
  2. LOPERAMIDE HCL [Suspect]
     Dosage: UNK
  3. PROPRANOLOL [Suspect]
     Dosage: UNK
  4. VITAMINS NOS [Suspect]
     Dosage: UNK
  5. NAPROXEN [Suspect]
     Dosage: UNK
  6. PSEUDOEPHEDRINE HCL [Suspect]
     Dosage: UNK
  7. PAROXETINE HCL [Suspect]
     Dosage: UNK

REACTIONS (1)
  - DEATH [None]
